FAERS Safety Report 18995181 (Version 1)
Quarter: 2021Q1

REPORT INFORMATION
  Report Type: Spontaneous
  Country: GB (occurrence: GB)
  Receive Date: 20210311
  Receipt Date: 20210311
  Transmission Date: 20210420
  Serious: Yes (Disabling, Other)
  Sender: FDA-Public Use
  Company Number: GB-ORGANON-1802GBR003823

PATIENT
  Age: 78 Year
  Sex: Male
  Weight: 95.09 kg

DRUGS (12)
  1. RAMIPRIL. [Concomitant]
     Active Substance: RAMIPRIL
     Dosage: 10 MILLIGRAM, QD
     Dates: start: 20171114, end: 20171211
  2. HYPROMELLOSE [Concomitant]
     Active Substance: HYPROMELLOSES
     Dosage: 3 DF, QD
     Route: 050
     Dates: start: 20171114, end: 20171211
  3. ATORVASTATIN [Concomitant]
     Active Substance: ATORVASTATIN
     Dosage: 20 MG, QD
     Dates: start: 20171114, end: 20171211
  4. CLOPIDOGREL [Concomitant]
     Active Substance: CLOPIDOGREL BISULFATE
     Dosage: 75 MG, QD
     Dates: start: 20180108, end: 20180126
  5. IBUGEL [Concomitant]
     Active Substance: IBUPROFEN
     Dosage: APPLY TO AFFECTED AREAS, 3 TIMES A DAY ; AS NECESSARY
     Dates: start: 20171120
  6. BISOPROLOL [Concomitant]
     Active Substance: BISOPROLOL
     Dosage: 2.5 MG, QD
     Dates: start: 20171114, end: 20171211
  7. METFORMIN [Concomitant]
     Active Substance: METFORMIN HYDROCHLORIDE
     Dosage: 500 MG, QD
     Dates: start: 20171114
  8. ACETYLSALICYLIC ACID [Concomitant]
     Active Substance: ASPIRIN
     Dosage: 75 MG, QD
     Dates: start: 20171114, end: 20171211
  9. TAMSULOSIN HYDROCHLORIDE. [Concomitant]
     Active Substance: TAMSULOSIN HYDROCHLORIDE
     Dosage: 400 MICROGRAM, QD; FORMULATION: MODIFIED?RELEASE CAPSULE
     Dates: start: 20171114, end: 20171211
  10. FINASTERIDE. [Suspect]
     Active Substance: FINASTERIDE
     Indication: LOWER URINARY TRACT SYMPTOMS
     Dosage: 5 MG
     Route: 048
  11. NITROLINGUAL [Concomitant]
     Active Substance: NITROGLYCERIN
     Dosage: 1?2 400MCG/DOSE; FORMULATION: SUBLINGUAL SPRAY
     Route: 060
     Dates: start: 20171109
  12. CODEINE PHOSPHATE;PARACETAMOL [Concomitant]
     Active Substance: ACETAMINOPHEN\CODEINE PHOSPHATE
     Dosage: 15MG.500MG ? 1?2 UP TO 4 TIMES DAILY
     Dates: start: 20171120

REACTIONS (1)
  - Perineal pain [Recovered/Resolved]

NARRATIVE: CASE EVENT DATE: 20171219
